FAERS Safety Report 4429664-3 (Version None)
Quarter: 2004Q3

REPORT INFORMATION
  Report Type: 
  Country: None (occurrence: None)
  Receive Date: 20040819
  Receipt Date: 20040813
  Transmission Date: 20050211
  Serious: Yes (Other)
  Sender: FDA-Public Use
  Company Number: US-MERCK-0408USA01209

PATIENT
  Sex: Male

DRUGS (4)
  1. VICODIN [Concomitant]
     Route: 065
  2. PERCOCET [Concomitant]
     Route: 065
  3. ZOCOR [Suspect]
     Indication: BLOOD CHOLESTEROL INCREASED
     Route: 048
     Dates: start: 19960101, end: 20040415
  4. VERAPAMIL [Concomitant]
     Route: 065
     Dates: start: 19960101, end: 20030101

REACTIONS (4)
  - ASTHENIA [None]
  - INTERVERTEBRAL DISC COMPRESSION [None]
  - MUSCLE SPASMS [None]
  - PARALYSIS [None]
